FAERS Safety Report 9112057 (Version 1)
Quarter: 2013Q1

REPORT INFORMATION
  Report Type: Spontaneous
  Country: US (occurrence: US)
  Receive Date: 20130219
  Receipt Date: 20130219
  Transmission Date: 20140127
  Serious: No
  Sender: FDA-Public Use
  Company Number: US-BRISTOL-MYERS SQUIBB COMPANY-17052994

PATIENT
  Age: 42 Year
  Sex: Female

DRUGS (3)
  1. ORENCIA [Suspect]
     Indication: RHEUMATOID ARTHRITIS
     Dosage: LAST INFUSION IN SEP2012
     Route: 042
  2. METHOTREXATE [Suspect]
  3. HUMIRA [Suspect]

REACTIONS (2)
  - Rheumatoid arthritis [Unknown]
  - Exostosis [Unknown]
